FAERS Safety Report 7962556-1 (Version None)
Quarter: 2011Q4

REPORT INFORMATION
  Report Type: 
  Country: None (occurrence: None)
  Receive Date: 20111207
  Receipt Date: 20111130
  Transmission Date: 20120403
  Serious: Yes (Hospitalization)
  Sender: FDA-Public Use
  Company Number: IT-GLAXOSMITHKLINE-B0767558A

PATIENT
  Sex: Male

DRUGS (7)
  1. LISINOPRIL [Suspect]
     Indication: HYPERTENSION
     Dosage: 10MG PER DAY
     Route: 048
     Dates: start: 20110101, end: 20110915
  2. LASIX [Concomitant]
     Indication: CARDIAC FAILURE
     Dosage: 150MG PER DAY
     Route: 048
     Dates: start: 20110701, end: 20110915
  3. AMIODARONE HCL [Concomitant]
     Indication: ATRIAL FIBRILLATION
     Dosage: 200MG PER DAY
     Route: 048
  4. LANOXIN [Suspect]
     Indication: ATRIAL FIBRILLATION
     Dosage: 125MG PER DAY
     Route: 048
     Dates: start: 20110101, end: 20110915
  5. CANRENOATE POTASSIUM [Suspect]
     Indication: CARDIAC DISORDER
     Dosage: 100MG PER DAY
     Route: 048
     Dates: start: 20110101, end: 20110915
  6. COUMADIN [Concomitant]
     Indication: ATRIAL FIBRILLATION
     Dosage: 5MG PER DAY
     Route: 048
     Dates: start: 19970101, end: 20110915
  7. REPAGLINIDE [Concomitant]
     Indication: TYPE 2 DIABETES MELLITUS
     Dosage: 6MG PER DAY
     Route: 048
     Dates: start: 20100101, end: 20110915

REACTIONS (3)
  - HEART RATE ABNORMAL [None]
  - RENAL FAILURE ACUTE [None]
  - OVERDOSE [None]
